FAERS Safety Report 12235590 (Version 1)
Quarter: 2016Q2

REPORT INFORMATION
  Report Type: Spontaneous
  Country: US (occurrence: US)
  Receive Date: 20160404
  Receipt Date: 20160404
  Transmission Date: 20160815
  Serious: No
  Sender: FDA-Public Use
  Company Number: US-INVAGEN PHARMACEUTICALS, INC.-1050188

PATIENT
  Age: 53 Year
  Sex: Female
  Weight: 47.73 kg

DRUGS (1)
  1. SERTRALINE [Suspect]
     Active Substance: SERTRALINE HYDROCHLORIDE
     Indication: DEPRESSION
     Route: 048

REACTIONS (7)
  - Constipation [Recovered/Resolved]
  - Anxiety [Unknown]
  - Dizziness [Unknown]
  - Diarrhoea [Unknown]
  - Dry mouth [Unknown]
  - Faeces hard [Recovered/Resolved]
  - Weight increased [Unknown]
